FAERS Safety Report 8945480 (Version 1)
Quarter: 2012Q4

REPORT INFORMATION
  Report Type: 
  Country: US (occurrence: US)
  Receive Date: 20121205
  Receipt Date: 20121205
  Transmission Date: 20130627
  Serious: No
  Sender: FDA-Public Use
  Company Number: US-BAYER-2012-127175

PATIENT
  Age: 65 Year
  Sex: Male
  Weight: 77.1 kg

DRUGS (1)
  1. ALEVE CAPLET/TABLET,MIDOL EXTENDED RELIEF CAPLET [Suspect]
     Indication: SHOULDER PAIN
     Dosage: 1 DF, QD
     Route: 048
     Dates: end: 20121122

REACTIONS (1)
  - Renal pain [Recovered/Resolved]
